FAERS Safety Report 13660646 (Version 3)
Quarter: 2017Q3

REPORT INFORMATION
  Report Type: Report from Study
  Country: US (occurrence: US)
  Receive Date: 20170616
  Receipt Date: 20170802
  Transmission Date: 20171127
  Serious: Yes (Hospitalization)
  Sender: FDA-Public Use
  Company Number: US-PFIZER INC-2017250358

PATIENT
  Age: 16 Year
  Sex: Male
  Weight: 58 kg

DRUGS (27)
  1. CYCLOPHOSPHAMIDE. [Concomitant]
     Active Substance: CYCLOPHOSPHAMIDE
     Indication: ANAPLASTIC LARGE-CELL LYMPHOMA
     Dosage: PROPHASE (CYCLE = 5 DAYS)200 MG/M2, OVER 15-30 MINUTES ON DAYS 1-2
     Route: 042
     Dates: start: 20170217, end: 20170221
  2. DOCUSATE-SENNA [Concomitant]
     Dosage: UNK
  3. CRIZOTINIB [Suspect]
     Active Substance: CRIZOTINIB
     Dosage: COURSE B CYCLES 2, 4 AND 6 (CYCLE= 21 DAYS): 165MG/M2 PO BID ON DAYS 1-21
     Route: 048
  4. IFOSFAMIDE. [Concomitant]
     Active Substance: IFOSFAMIDE
     Indication: ANAPLASTIC LARGE-CELL LYMPHOMA
     Dosage: COURSE A: CYCLES 1, 3 AND 5 (CYCLE= 21 DAYS)800 MG/M2, OVER 60 MIN ON DAYS 1-5
     Route: 042
     Dates: start: 20170222, end: 20170410
  5. GRANISETRON [Concomitant]
     Active Substance: GRANISETRON
     Dosage: UNK
  6. SCOPOLAMINE /00008701/ [Concomitant]
     Active Substance: SCOPOLAMINE
     Dosage: UNK
  7. CHLORHEXIDINE GLUCONATE. [Concomitant]
     Active Substance: CHLORHEXIDINE GLUCONATE
     Dosage: UNK
  8. CRIZOTINIB [Suspect]
     Active Substance: CRIZOTINIB
     Indication: ANAPLASTIC LARGE-CELL LYMPHOMA
     Dosage: COURSE A CYCLES 1, 3 AND 5 (CYCLE= 21 DAYS):165 MG/M2, BID ON DAYS 1-21
     Route: 048
     Dates: start: 20170222, end: 20170427
  9. DEXAMETHASONE. [Suspect]
     Active Substance: DEXAMETHASONE
     Dosage: COURSE B CYCLES 2, 4 AND 6 (CYCLE= 21 DAYS): 5 MG, BID ON DAYS 1-5
     Route: 048
  10. CYTARABINE. [Concomitant]
     Active Substance: CYTARABINE
     Indication: ANAPLASTIC LARGE-CELL LYMPHOMA
     Dosage: PROPHASE (CYCLE = 5 DAYS)15-24MG  ON DAY 1 (AGE BASED DOSING)
     Route: 037
     Dates: start: 20170217, end: 20170221
  11. CYCLOPHOSPHAMIDE. [Concomitant]
     Active Substance: CYCLOPHOSPHAMIDE
     Dosage: COURSE B: CYCLES 2, 4 AND 6 (CYCLE= 21 DAYS)  200 MG/M2 OVER 15-30 MINUTES ON DAYS 1-5
     Route: 042
     Dates: end: 20170320
  12. DRONABINOL. [Concomitant]
     Active Substance: DRONABINOL
     Dosage: UNK
  13. SULFAMETHOXAZOLE-TRIMETHOPRIM [Concomitant]
     Active Substance: SULFAMETHOXAZOLE\TRIMETHOPRIM
     Dosage: UNK
  14. METHOTREXATE SODIUM. [Concomitant]
     Active Substance: METHOTREXATE SODIUM
     Dosage: COURSE A CYCLES 1, 3 AND 5 (CYCLE= 21 DAYS); :3000 MG/M2, OVER 3 HOURS ON DAY 1
     Route: 042
     Dates: start: 20170222, end: 20170406
  15. HYDROCORTISONE. [Suspect]
     Active Substance: HYDROCORTISONE
     Indication: ANAPLASTIC LARGE-CELL LYMPHOMA
     Dosage: PROPHASE (CYCLE = 5 DAYS) 7.5-12MG ON DAY 1 (AGE BASED DOSING)
     Route: 037
     Dates: start: 20170217, end: 20170221
  16. DOXORUBICIN HCL [Concomitant]
     Active Substance: DOXORUBICIN HYDROCHLORIDE
     Indication: ANAPLASTIC LARGE-CELL LYMPHOMA
     Dosage: COURSE B: CYCLES 2, 4 AND 6 (CYCLE= 21 DAYS)25 MG/M2, OVER 1-15 MIN ON DAYS 4 AND 5
     Route: 042
     Dates: end: 20170320
  17. DIPHENHYDRAMINE. [Concomitant]
     Active Substance: DIPHENHYDRAMINE
     Dosage: UNK
  18. LEVOFLOXACIN. [Concomitant]
     Active Substance: LEVOFLOXACIN
     Dosage: UNK
  19. DEXAMETHASONE. [Suspect]
     Active Substance: DEXAMETHASONE
     Indication: ANAPLASTIC LARGE-CELL LYMPHOMA
     Dosage: PROPHASE (CYCLE = 5 DAYS)5 MG/M2, QD ON DAYS 1-2, AND BID ON DAYS 3-5
     Route: 048
     Dates: start: 20170217, end: 20170221
  20. CYTARABINE. [Concomitant]
     Active Substance: CYTARABINE
     Dosage: COURSE A CYCLES 1, 3 AND 5: 150 MG/M2, OVER 1-30 MINUTES Q12 HOURS ON DAYS 4 AND 5 (TOTAL 4 DOSES)
     Route: 042
     Dates: end: 20170411
  21. METHOTREXATE SODIUM. [Concomitant]
     Active Substance: METHOTREXATE SODIUM
     Dosage: COURSE B CYCLES 2, 4 AND 6 (CYCLE= 21 DAYS); :3000 MG/M2, OVER 3 HOURS ON DAY 1
     Route: 042
  22. METHOTREXATE SODIUM. [Concomitant]
     Active Substance: METHOTREXATE SODIUM
     Indication: ANAPLASTIC LARGE-CELL LYMPHOMA
     Dosage: PROPHASE (CYCLE = 5 DAYS) 7.5-12MG ON DAY 1 (AGE BASED DOSING)
     Route: 037
     Dates: start: 20170217, end: 20170221
  23. LACTULOSE. [Concomitant]
     Active Substance: LACTULOSE
     Dosage: UNK
  24. DEXAMETHASONE. [Suspect]
     Active Substance: DEXAMETHASONE
     Dosage: COURSE A  CYCLES 1, 3 AND 5 (CYCLE= 21 DAYS): 5 MG, BID ON DAYS 1-5
     Route: 048
     Dates: start: 20170222, end: 20170411
  25. VP-16 [Concomitant]
     Active Substance: ETOPOSIDE
     Indication: ANAPLASTIC LARGE-CELL LYMPHOMA
     Dosage: COURSE A: CYCLES 1, 3 AND 5 (CYCLE= 21 DAYS)100MG/M2 IV OVER 2 HOURS ON DAYS 4 AND 5
     Route: 042
     Dates: end: 20170410
  26. PROMETHAZINE [Concomitant]
     Active Substance: PROMETHAZINE\PROMETHAZINE HYDROCHLORIDE
  27. BOOST [Concomitant]
     Active Substance: DIETARY SUPPLEMENT
     Indication: NUTRITIONAL SUPPLEMENTATION
     Dosage: UNK

REACTIONS (1)
  - Embolism [Unknown]

NARRATIVE: CASE EVENT DATE: 20170426
